FAERS Safety Report 12766255 (Version 1)
Quarter: 2016Q3

REPORT INFORMATION
  Report Type: Spontaneous
  Country: US (occurrence: US)
  Receive Date: 20160915
  Receipt Date: 20160915
  Transmission Date: 20161109
  Serious: No
  Sender: FDA-Public Use
  Company Number: None

PATIENT
  Sex: Female

DRUGS (1)
  1. PROLIA [Suspect]
     Active Substance: DENOSUMAB
     Indication: BONE DENSITY ABNORMAL
     Dosage: 60 MG EVERY 6 MONTHS SQ
     Route: 058
     Dates: start: 20160714

REACTIONS (3)
  - Family stress [None]
  - Temporomandibular joint syndrome [None]
  - Depressed mood [None]
